FAERS Safety Report 4373275-5 (Version None)
Quarter: 2004Q2

REPORT INFORMATION
  Report Type: 
  Country: None (occurrence: None)
  Receive Date: 20040608
  Receipt Date: 20040603
  Transmission Date: 20050107
  Serious: Yes (Hospitalization)
  Sender: FDA-Public Use
  Company Number: FR-GLAXOSMITHKLINE-B0334608A

PATIENT
  Age: 97 Year
  Sex: Female

DRUGS (5)
  1. AUGMENTIN [Suspect]
     Dosage: 2G PER DAY
     Route: 048
     Dates: start: 20040219, end: 20040224
  2. TRIFLUCAN [Suspect]
     Indication: ILL-DEFINED DISORDER
     Dosage: 1G PER DAY
     Route: 048
     Dates: start: 20040219, end: 20040227
  3. STILNOX [Concomitant]
     Indication: ILL-DEFINED DISORDER
     Dosage: .5TAB PER DAY
     Route: 048
  4. ZANIDIP [Concomitant]
     Indication: ESSENTIAL HYPERTENSION
     Dosage: 10MG PER DAY
     Route: 048
  5. RISORDAN [Concomitant]
     Indication: ILL-DEFINED DISORDER
     Dosage: 40MG PER DAY
     Route: 048

REACTIONS (4)
  - EPISTAXIS [None]
  - OEDEMA PERIPHERAL [None]
  - RASH ERYTHEMATOUS [None]
  - VASCULAR PURPURA [None]
